FAERS Safety Report 16242300 (Version 1)
Quarter: 2019Q2

REPORT INFORMATION
  Report Type: Spontaneous
  Country: US (occurrence: US)
  Receive Date: 20190426
  Receipt Date: 20190426
  Transmission Date: 20190711
  Serious: No
  Sender: FDA-Public Use
  Company Number: US-ASTRAZENECA-2019SE51747

PATIENT
  Age: 65 Year
  Sex: Male
  Weight: 93 kg

DRUGS (1)
  1. BYDUREON BCISE [Suspect]
     Active Substance: EXENATIDE
     Indication: DIABETES MELLITUS
     Route: 058
     Dates: start: 2017

REACTIONS (6)
  - Injection site mass [Unknown]
  - Injection site haemorrhage [Unknown]
  - Device malfunction [Unknown]
  - Circumstance or information capable of leading to medication error [Unknown]
  - Device leakage [Unknown]
  - Incorrect dose administered by product [Unknown]

NARRATIVE: CASE EVENT DATE: 2017
